FAERS Safety Report 7775975-3 (Version None)
Quarter: 2011Q3

REPORT INFORMATION
  Report Type: 
  Country: None (occurrence: None)
  Receive Date: 20110923
  Receipt Date: 20110916
  Transmission Date: 20111222
  Serious: No
  Sender: FDA-Public Use
  Company Number: US-RB-032249-11

PATIENT
  Sex: Male

DRUGS (3)
  1. SUBUTEX [Suspect]
     Dosage: TAPERING DOSES
     Route: 064
     Dates: start: 20100701, end: 20101101
  2. SUBUTEX [Suspect]
     Indication: DRUG DEPENDENCE
     Route: 064
     Dates: start: 20101101, end: 20110506
  3. SUBUTEX [Suspect]
     Route: 063
     Dates: start: 20110507

REACTIONS (4)
  - HOSPITALISATION [None]
  - MEDIUM-CHAIN ACETYL-COENZYME A DEHYDROGENASE DEFICIENCY [None]
  - EXPOSURE DURING BREAST FEEDING [None]
  - MATERNAL EXPOSURE DURING PREGNANCY [None]
